FAERS Safety Report 5331487-8 (Version None)
Quarter: 2007Q2

REPORT INFORMATION
  Report Type: 
  Country: None (occurrence: None)
  Receive Date: 20070522
  Receipt Date: 20070514
  Transmission Date: 20071010
  Serious: Yes (Other)
  Sender: FDA-Public Use
  Company Number: US-ELI_LILLY_AND_COMPANY-US200705003518

PATIENT
  Age: 62 Year
  Sex: Female
  Weight: 114.29 kg

DRUGS (5)
  1. BYETTA [Suspect]
     Indication: DIABETES MELLITUS INSULIN-DEPENDENT
     Dosage: 5 UG, 2/D
     Route: 058
     Dates: start: 20070101
  2. HUMALOG [Concomitant]
     Indication: DIABETES MELLITUS
     Dosage: 30 U, UNK
     Route: 058
  3. LANTUS [Concomitant]
     Indication: DIABETES MELLITUS
     Dosage: 98 U, UNKNOWN
     Route: 058
  4. DIURETICS [Concomitant]
     Dosage: UNK, UNKNOWN
     Route: 048
  5. ANTIHYPERTENSIVE AGENT [Concomitant]
     Dosage: UNK, UNKNOWN
     Route: 048

REACTIONS (5)
  - CATARACT [None]
  - DECREASED APPETITE [None]
  - EYE HAEMORRHAGE [None]
  - INCORRECT DOSE ADMINISTERED [None]
  - WEIGHT DECREASED [None]
